FAERS Safety Report 17434327 (Version 3)
Quarter: 2020Q1

REPORT INFORMATION
  Report Type: Spontaneous
  Country: US (occurrence: US)
  Receive Date: 20200219
  Receipt Date: 20200311
  Transmission Date: 20200409
  Serious: No
  Sender: FDA-Public Use
  Company Number: US-PFIZER INC-2020072378

PATIENT
  Age: 73 Year
  Sex: Male
  Weight: 79.38 kg

DRUGS (8)
  1. VERAPAMIL HCL [Suspect]
     Active Substance: VERAPAMIL HYDROCHLORIDE
     Indication: MIGRAINE
     Dosage: 80 MG, 1X/DAY
     Route: 048
     Dates: start: 20200131, end: 20200206
  2. DILTIAZEM HCL [Concomitant]
     Active Substance: DILTIAZEM HYDROCHLORIDE
     Indication: CARDIAC DISORDER
     Dosage: UNK, DAILY (BE 180 CP 24 BY MOUTH DAILY)
     Route: 048
  3. TERAZOSIN HCL [Concomitant]
     Active Substance: TERAZOSIN HYDROCHLORIDE
     Indication: DYSURIA
     Dosage: 10 MG, DAILY
     Route: 048
  4. VERAPAMIL HCL [Suspect]
     Active Substance: VERAPAMIL HYDROCHLORIDE
     Dosage: 80 MG, DAILY (AT NIGHT)
     Dates: start: 202002, end: 202002
  5. VERAPAMIL HCL [Suspect]
     Active Substance: VERAPAMIL HYDROCHLORIDE
     Dosage: 40 MG, 2X/DAY (HALF AT NIGHT AND HALF IN THE MORNING)
     Dates: start: 202002, end: 202002
  6. VERAPAMIL HCL [Suspect]
     Active Substance: VERAPAMIL HYDROCHLORIDE
     Dosage: 80 MG, 2X/DAY (ONE IN THE MORNING AND ONE AT NIGHT )
     Dates: start: 20200207, end: 202002
  7. VERAPAMIL HCL [Suspect]
     Active Substance: VERAPAMIL HYDROCHLORIDE
     Dosage: 120 MG, DAILY (HALF TABLET IN THE MORNING AND ONE AT NIGHT)
     Dates: start: 20200215
  8. VERAPAMIL HCL [Suspect]
     Active Substance: VERAPAMIL HYDROCHLORIDE
     Dosage: 80 MG, 2X/DAY
     Route: 048
     Dates: start: 20200201, end: 20200228

REACTIONS (5)
  - Product use in unapproved indication [Unknown]
  - Off label use [Unknown]
  - Arthralgia [Not Recovered/Not Resolved]
  - Feeling abnormal [Unknown]
  - Pain in extremity [Recovered/Resolved]

NARRATIVE: CASE EVENT DATE: 20200131
